FAERS Safety Report 23970614 (Version 1)
Quarter: 2024Q2

REPORT INFORMATION
  Report Type: Spontaneous
  Country: CA (occurrence: CA)
  Receive Date: 20240613
  Receipt Date: 20240613
  Transmission Date: 20240716
  Serious: Yes (Life-Threatening, Hospitalization, Disabling, Other)
  Sender: FDA-Public Use
  Company Number: CA-BAXTER-2024BAX019581

PATIENT
  Age: 33 Year
  Sex: Male
  Weight: 91 kg

DRUGS (6)
  1. DOXORUBICIN [Suspect]
     Active Substance: DOXORUBICIN
     Indication: Product used for unknown indication
     Dosage: 2 MG
     Route: 042
  2. DOXORUBICIN [Suspect]
     Active Substance: DOXORUBICIN
     Dosage: 2 MG, DOSAGE FORM: NOT SPECIFIED
     Route: 042
  3. ADCETRIS [Suspect]
     Active Substance: BRENTUXIMAB VEDOTIN
     Indication: Product used for unknown indication
     Dosage: 50 MG, DOSAGE FORM: INJECTION
     Route: 042
  4. ADCETRIS [Suspect]
     Active Substance: BRENTUXIMAB VEDOTIN
     Dosage: 50 MG, DOSAGE FORM: POWDER FOR SOLUTION INTRAVENOUS
     Route: 042
  5. DACARBAZINE [Suspect]
     Active Substance: DACARBAZINE
     Indication: Product used for unknown indication
     Dosage: 600 MG
     Route: 042
  6. VINBLASTINE [Suspect]
     Active Substance: VINBLASTINE
     Indication: Product used for unknown indication
     Dosage: 1 MG
     Route: 042

REACTIONS (1)
  - Acute myocardial infarction [Recovered/Resolved with Sequelae]
